FAERS Safety Report 21658283 (Version 3)
Quarter: 2023Q2

REPORT INFORMATION
  Report Type: Spontaneous
  Country: CN (occurrence: CN)
  Receive Date: 20221129
  Receipt Date: 20230504
  Transmission Date: 20230722
  Serious: Yes (Death, Hospitalization, Other)
  Sender: FDA-Public Use
  Company Number: CN-GILEAD-2022-0606673

PATIENT
  Age: 48 Year
  Sex: Female

DRUGS (4)
  1. EPCLUSA [Suspect]
     Active Substance: SOFOSBUVIR\VELPATASVIR
     Indication: Hepatitis C
     Dosage: 1 DOSAGE FORM, QD
     Route: 048
     Dates: start: 20221024, end: 20221122
  2. WEI NING [Concomitant]
  3. GAN SHUANG [Concomitant]
  4. POTASSIUM [Concomitant]
     Active Substance: POTASSIUM

REACTIONS (16)
  - Pulmonary hypertension [Unknown]
  - Tricuspid valve incompetence [Unknown]
  - Hepatic cirrhosis [Unknown]
  - Chronic hepatic failure [Unknown]
  - Respiratory failure [Unknown]
  - Chest discomfort [Unknown]
  - Asthenia [Unknown]
  - Fatigue [Unknown]
  - Chest discomfort [Unknown]
  - Dyspnoea [Unknown]
  - Abdominal pain [Recovering/Resolving]
  - Hypersplenism [Unknown]
  - Electrolyte imbalance [Unknown]
  - Hepatic steatosis [Unknown]
  - Abdominal distension [Recovering/Resolving]
  - Cardiac failure [Fatal]
